FAERS Safety Report 7591651-4 (Version None)
Quarter: 2011Q3

REPORT INFORMATION
  Report Type: 
  Country: None (occurrence: None)
  Receive Date: 20110706
  Receipt Date: 20110610
  Transmission Date: 20111222
  Serious: Yes (Other)
  Sender: FDA-Public Use
  Company Number: US-BAYER-2011-006334

PATIENT
  Age: 16 Year
  Sex: Female
  Weight: 61.224 kg

DRUGS (7)
  1. YASMIN [Suspect]
     Indication: DYSMENORRHOEA
     Dosage: UNK
     Route: 048
  2. MULTI-VITAMIN [Concomitant]
     Route: 048
  3. CITRUCEL [Concomitant]
     Route: 048
  4. SINGULAIR [Concomitant]
     Dosage: 10 MG, UNK
     Route: 048
  5. VIRAL VACCINES [Concomitant]
  6. VICODIN [Concomitant]
     Route: 048
  7. YAZ [Suspect]
     Indication: DYSMENORRHOEA
     Dosage: UNK
     Route: 048
     Dates: start: 20060925, end: 20100601

REACTIONS (6)
  - CHOLECYSTITIS CHRONIC [None]
  - GALLBLADDER DISORDER [None]
  - DIARRHOEA [None]
  - BILIARY DYSKINESIA [None]
  - ABDOMINAL PAIN [None]
  - GALLBLADDER PAIN [None]
